FAERS Safety Report 5513173-4 (Version None)
Quarter: 2007Q4

REPORT INFORMATION
  Report Type: 
  Country: None (occurrence: None)
  Receive Date: 20071112
  Receipt Date: 20070614
  Transmission Date: 20080405
  Serious: No
  Sender: FDA-Public Use
  Company Number: US-BRISTOL-MYERS SQUIBB COMPANY-13814561

PATIENT
  Age: 32 Year
  Sex: Female

DRUGS (1)
  1. SUSTIVA [Suspect]
     Route: 048
     Dates: start: 20070301

REACTIONS (1)
  - PREGNANCY [None]
